FAERS Safety Report 13756907 (Version 1)
Quarter: 2017Q3

REPORT INFORMATION
  Report Type: Spontaneous
  Country: NO (occurrence: NO)
  Receive Date: 20170714
  Receipt Date: 20170714
  Transmission Date: 20171127
  Serious: Yes (Other)
  Sender: FDA-Public Use
  Company Number: NO-009507513-1706NOR010798

PATIENT
  Age: 43 Year
  Sex: Female

DRUGS (8)
  1. TEMOZOLOMIDE. [Suspect]
     Active Substance: TEMOZOLOMIDE
     Indication: METASTATIC NEOPLASM
     Dosage: UNK
     Route: 048
  2. INSULIN [Concomitant]
     Active Substance: INSULIN NOS
     Dosage: MEALTIME BOLUS DOSES WERE GRADUALLY REDUCED TO A TOTAL OF 8 IU PER DAY
  3. TEMOZOLOMIDE. [Suspect]
     Active Substance: TEMOZOLOMIDE
     Dosage: UNK
     Route: 048
  4. CAPECITABINE. [Suspect]
     Active Substance: CAPECITABINE
     Indication: METASTATIC NEOPLASM
     Dosage: UNK
  5. INSULIN [Concomitant]
     Active Substance: INSULIN NOS
     Dosage: 42?50 IU DAILY, GIVEN AS FOUR BOLUS DOSES AT MEALTIMES AND ONE BASAL DOSE AT BEDTIME
  6. INSULIN [Concomitant]
     Active Substance: INSULIN NOS
     Dosage: BASAL/BOLUS REGIME OF 34 IU INSULIN DAILY
  7. INSULIN [Concomitant]
     Active Substance: INSULIN NOS
     Dosage: 28 IU DAILY
  8. CAPECITABINE. [Suspect]
     Active Substance: CAPECITABINE
     Dosage: UNK

REACTIONS (2)
  - Coeliac disease [Recovering/Resolving]
  - Off label use [Unknown]
